FAERS Safety Report 9355714 (Version 3)
Quarter: 2013Q3

REPORT INFORMATION
  Report Type: Spontaneous
  Country: JP (occurrence: JP)
  Receive Date: 20130619
  Receipt Date: 20130703
  Transmission Date: 20140515
  Serious: Yes (Death, Other)
  Sender: FDA-Public Use
  Company Number: JP-PFIZER INC-2013182852

PATIENT
  Age: 93 Year
  Sex: Male

DRUGS (9)
  1. LYRICA [Suspect]
     Indication: PAIN
     Dosage: 75 MG, 1X/DAY
     Route: 048
     Dates: start: 20130614, end: 20130614
  2. BAYASPIRIN [Concomitant]
     Dosage: 100 MG, 1X/DAY
     Route: 048
     Dates: start: 20090522
  3. LASIX [Concomitant]
     Indication: OEDEMA
     Dosage: 10 MG, 2X/DAY
     Route: 048
     Dates: start: 20130206
  4. ANPLAG [Concomitant]
     Indication: OEDEMA
     Dosage: 50 MG, 2X/DAY
     Route: 048
     Dates: start: 20110522
  5. ANPLAG [Concomitant]
     Indication: BLOOD DISORDER
  6. GASTER D [Concomitant]
     Indication: DYSPEPSIA
     Dosage: 10 MG, 2X/DAY
     Route: 048
     Dates: start: 20090522
  7. LECICARBON [Concomitant]
     Indication: CONSTIPATION
     Dosage: UNK
     Route: 054
     Dates: start: 20130611, end: 20130613
  8. KENEI G [Concomitant]
     Indication: CONSTIPATION
     Dosage: 30 ML, 1X/DAY
     Route: 054
     Dates: start: 20130611, end: 20130613
  9. VOLTAREN [Concomitant]
     Indication: PAIN
     Dosage: 12.5 MG, 1X/DAY
     Route: 054
     Dates: start: 20130613, end: 20130614

REACTIONS (5)
  - Cardiac failure chronic [Fatal]
  - Asphyxia [Fatal]
  - Altered state of consciousness [Not Recovered/Not Resolved]
  - Cardio-respiratory arrest [Unknown]
  - Somnolence [Unknown]
